FAERS Safety Report 8918716 (Version 1)
Quarter: 2012Q4

REPORT INFORMATION
  Report Type: 
  Country: US (occurrence: US)
  Receive Date: 20121120
  Receipt Date: 20121120
  Transmission Date: 20130627
  Serious: No
  Sender: FDA-Public Use
  Company Number: US-ASTRAZENECA-2012SE20175

PATIENT
  Age: 46 Year
  Sex: Male

DRUGS (4)
  1. NEXIUM [Suspect]
     Route: 048
  2. CARAFATE [Concomitant]
  3. PEPCID [Concomitant]
  4. ZANTAC [Concomitant]

REACTIONS (4)
  - Haematemesis [Unknown]
  - Oesophageal disorder [Unknown]
  - Nausea [Unknown]
  - Drug dose omission [Unknown]
